FAERS Safety Report 4882536-2 (Version None)
Quarter: 2006Q1

REPORT INFORMATION
  Report Type: 
  Country: None (occurrence: None)
  Receive Date: 20060113
  Receipt Date: 20060107
  Transmission Date: 20060701
  Serious: Yes (Other)
  Sender: FDA-Public Use
  Company Number: 2006004120

PATIENT
  Age: 36 Year
  Sex: Male
  Weight: 70.3075 kg

DRUGS (2)
  1. HYDROCORTISONE [Suspect]
     Indication: ACCIDENTAL EXPOSURE
     Dosage: TWICE, ORAL
     Route: 048
     Dates: start: 20060105, end: 20060105
  2. NAPROXEN [Concomitant]

REACTIONS (3)
  - ACCIDENTAL EXPOSURE [None]
  - FACIAL PALSY [None]
  - RASH [None]
